FAERS Safety Report 9005360 (Version 3)
Quarter: 2013Q1

REPORT INFORMATION
  Report Type: Spontaneous
  Country: US (occurrence: US)
  Receive Date: 20130108
  Receipt Date: 20130207
  Transmission Date: 20140127
  Serious: Yes (Death)
  Sender: FDA-Public Use
  Company Number: US-PFIZER INC-2013007612

PATIENT
  Age: 64 Year
  Sex: Female

DRUGS (19)
  1. DILTIAZEM HCL [Suspect]
     Dosage: UNK
     Route: 048
  2. VENLAFAXINE HYDROCHLORIDE [Suspect]
     Dosage: UNK
     Route: 048
  3. PANTOPRAZOLE [Suspect]
     Dosage: UNK
     Route: 048
  4. LANSOPRAZOLE [Suspect]
     Dosage: UNK
     Route: 048
  5. DICLOFENAC EPOLAMINE [Suspect]
     Dosage: UNK
     Route: 048
  6. CIPROFLOXACIN [Suspect]
  7. DESIPRAMINE [Suspect]
     Dosage: UNK
     Route: 048
  8. LAMOTRIGINE [Suspect]
     Dosage: UNK
     Route: 048
  9. HYDROCHLOROTHIAZIDE [Suspect]
     Dosage: UNK
     Route: 048
  10. ARMODAFINIL [Suspect]
     Dosage: UNK
     Route: 048
  11. POTASSIUM CHLORIDE [Suspect]
     Dosage: UNK
     Route: 048
  12. TRIFLUOPERAZINE [Suspect]
     Dosage: UNK
     Route: 048
  13. ESCITALOPRAM [Suspect]
     Dosage: UNK
     Route: 048
  14. NAPROXEN [Suspect]
     Dosage: UNK
     Route: 048
  15. NITROFURANTOIN [Suspect]
     Dosage: UNK
     Route: 048
  16. ACETAMINOPHEN\HYDROCODONE [Suspect]
     Dosage: UNK
     Route: 048
  17. ACETAMINOPHEN/PROPOXYPHENE [Suspect]
     Dosage: UNK
     Route: 048
  18. SOLIFENACIN [Suspect]
     Dosage: UNK
     Route: 048
  19. PROGESTIN [Suspect]
     Dosage: UNK
     Route: 048

REACTIONS (1)
  - Completed suicide [Fatal]
